FAERS Safety Report 7088757-5 (Version None)
Quarter: 2010Q4

REPORT INFORMATION
  Report Type: 
  Country: None (occurrence: None)
  Receive Date: 20101108
  Receipt Date: 20101027
  Transmission Date: 20110411
  Serious: Yes (Congenital Anomaly)
  Sender: FDA-Public Use
  Company Number: US-US-EMD SERONO, INC.-7010194

PATIENT

DRUGS (4)
  1. REBIF [Suspect]
     Route: 064
     Dates: start: 20090101, end: 20090101
  2. METFORMIN [Concomitant]
  3. OMEPRAZOLE [Concomitant]
  4. TEMAZEPAM [Concomitant]

REACTIONS (1)
  - CYTOGENETIC ABNORMALITY [None]
